FAERS Safety Report 10789736 (Version 2)
Quarter: 2015Q1

REPORT INFORMATION
  Report Type: Spontaneous
  Country: IE (occurrence: IE)
  Receive Date: 20150212
  Receipt Date: 20150317
  Transmission Date: 20150721
  Serious: Yes (Hospitalization)
  Sender: FDA-Public Use
  Company Number: IE-GILEAD-2015-0136307

PATIENT
  Age: 60 Year
  Sex: Male

DRUGS (7)
  1. DALMANE [Concomitant]
     Active Substance: FLURAZEPAM HYDROCHLORIDE
     Indication: SEDATIVE THERAPY
     Dosage: UNK
  2. COPEGUS [Concomitant]
     Active Substance: RIBAVIRIN
     Indication: HEPATITIS C
     Dosage: UNK
     Dates: start: 20141202
  3. DIAZEPAM. [Concomitant]
     Active Substance: DIAZEPAM
  4. TARGAXAN [Concomitant]
     Indication: HEPATIC ENCEPHALOPATHY
     Dosage: UNK
  5. HARVONI [Suspect]
     Active Substance: LEDIPASVIR\SOFOSBUVIR
     Indication: HEPATITIS C
     Dosage: 1 DF, QD
     Route: 048
     Dates: start: 20141202, end: 2015
  6. LAXOSE [Concomitant]
     Indication: FUNCTIONAL GASTROINTESTINAL DISORDER
     Dosage: UNK
  7. PINADONE [Concomitant]
     Indication: DRUG WITHDRAWAL MAINTENANCE THERAPY
     Dosage: UNK

REACTIONS (2)
  - Confusional state [Unknown]
  - Asterixis [Unknown]

NARRATIVE: CASE EVENT DATE: 20150120
